FAERS Safety Report 16561525 (Version 1)
Quarter: 2019Q3

REPORT INFORMATION
  Report Type: Other
  Country: GB (occurrence: GB)
  Receive Date: 20190711
  Receipt Date: 20190711
  Transmission Date: 20191004
  Serious: Yes (Other)
  Sender: FDA-Public Use
  Company Number: GB-HERITAGE PHARMACEUTICALS-2019HTG00323

PATIENT
  Age: 36 Year
  Sex: Female

DRUGS (4)
  1. FLUOXETINE [Suspect]
     Active Substance: FLUOXETINE HYDROCHLORIDE
     Dosage: 20 MG, 1X/DAY
     Dates: start: 20190515
  2. DESOGESTREL [Concomitant]
     Active Substance: DESOGESTREL
     Dosage: 1 DOSAGE UNITS, 1X/DAY
     Dates: start: 20180108
  3. DIAZEPAM. [Concomitant]
     Active Substance: DIAZEPAM
     Dosage: 1 DOSAGE UNITS, UP TO 3X/DAY
     Dates: start: 20190610
  4. HYLO-FORTE [Concomitant]
     Active Substance: HYALURONATE SODIUM
     Dosage: UNK, AS DIRECTED

REACTIONS (4)
  - Serotonin syndrome [Recovering/Resolving]
  - Hyperreflexia [Recovering/Resolving]
  - Tremor [Recovering/Resolving]
  - Clonus [Recovering/Resolving]

NARRATIVE: CASE EVENT DATE: 2019
